FAERS Safety Report 4503909-3 (Version None)
Quarter: 2004Q4

REPORT INFORMATION
  Report Type: 
  Country: None (occurrence: None)
  Receive Date: 20041115
  Receipt Date: 20041102
  Transmission Date: 20050328
  Serious: Yes (Disabling, Other)
  Sender: FDA-Public Use
  Company Number: 2003036888

PATIENT
  Age: 68 Year
  Sex: Female

DRUGS (15)
  1. LIPITOR [Suspect]
     Indication: BLOOD CHOLESTEROL INCREASED
     Dosage: 40 MG ( 1 IN 1 D )
     Dates: start: 19990917, end: 20001001
  2. POTASSIUM (POTASSIUM) [Concomitant]
  3. ROFECOXIB [Suspect]
     Indication: ILL-DEFINED DISORDER
     Dates: end: 20000701
  4. PREDNISONE [Suspect]
     Indication: POLYMYOSITIS
     Dosage: 10 MG (1 IN 1 D)
     Dates: start: 20000823
  5. AMLODIPINE BESYLATE [Concomitant]
  6. DYAZIDE [Concomitant]
  7. LEVOTHYROXINE SODIUM [Concomitant]
  8. CENTRUM SILVER (ASCORBIC ACID, CALCIUM, MINERALS NOS, RETINOL, TOCOPHE [Concomitant]
  9. ASPIRIN [Concomitant]
  10. VITAMIN B (VITAMIN B) [Concomitant]
  11. ASCORBIC ACID [Concomitant]
  12. TOCOPHEROL CONCENTRATE CAP [Concomitant]
  13. METHYLCELLULOSE (METHYLCELLULOSE) [Concomitant]
  14. PIROXICAM [Concomitant]
  15. FERROUS SULFATE TAB [Concomitant]

REACTIONS (44)
  - ACTINIC KERATOSIS [None]
  - ARTHRALGIA [None]
  - ARTHRITIS [None]
  - ASEPTIC NECROSIS BONE [None]
  - ASTHENIA [None]
  - BLOOD CHLORIDE DECREASED [None]
  - BONE DENSITY DECREASED [None]
  - CONSTIPATION [None]
  - CONTUSION [None]
  - DERMATITIS CONTACT [None]
  - DIFFICULTY IN WALKING [None]
  - DYSPHAGIA [None]
  - ECZEMA [None]
  - ELECTROLYTE IMBALANCE [None]
  - FALL [None]
  - GAIT DISTURBANCE [None]
  - GASTROOESOPHAGEAL REFLUX DISEASE [None]
  - GENITAL RASH [None]
  - HAEMATOCHEZIA [None]
  - HIP ARTHROPLASTY [None]
  - HYPERTENSION [None]
  - HYPOKALAEMIA [None]
  - HYPONATRAEMIA [None]
  - HYPOTHYROIDISM [None]
  - LOWER RESPIRATORY TRACT INFECTION [None]
  - MUSCLE ATROPHY [None]
  - MUSCLE STRAIN [None]
  - MYALGIA [None]
  - MYOPATHY [None]
  - OEDEMA [None]
  - OSTEOPENIA [None]
  - OSTEOPOROSIS [None]
  - PAIN [None]
  - PAIN IN EXTREMITY [None]
  - POLYMYOSITIS [None]
  - POSTMENOPAUSAL HAEMORRHAGE [None]
  - RASH [None]
  - RHINITIS ALLERGIC [None]
  - SLEEP DISORDER [None]
  - TENDERNESS [None]
  - URINARY TRACT INFECTION [None]
  - VULVAL ULCERATION [None]
  - WALKING AID USER [None]
  - WEIGHT INCREASED [None]
